FAERS Safety Report 9369675 (Version 1)
Quarter: 2013Q2

REPORT INFORMATION
  Report Type: Spontaneous
  Country: FR (occurrence: FR)
  Receive Date: 20130626
  Receipt Date: 20130626
  Transmission Date: 20140414
  Serious: Yes (Other)
  Sender: FDA-Public Use
  Company Number: FR-JNJFOC-20130615374

PATIENT
  Sex: Female

DRUGS (2)
  1. ALOSTIL 2% [Suspect]
     Route: 061
  2. ALOSTIL 2% [Suspect]
     Indication: ALOPECIA
     Dosage: 6 SPRAYING, THREE TIMES A DAY
     Route: 061

REACTIONS (2)
  - Ageusia [Not Recovered/Not Resolved]
  - Overdose [Not Recovered/Not Resolved]
